FAERS Safety Report 9112840 (Version 1)
Quarter: 2013Q1

REPORT INFORMATION
  Report Type: Spontaneous
  Country: US (occurrence: US)
  Receive Date: 20130211
  Receipt Date: 20130211
  Transmission Date: 20140127
  Serious: Yes (Hospitalization)
  Sender: FDA-Public Use
  Company Number: US-BAYER-2013-015756

PATIENT
  Age: 33 Year
  Sex: Female
  Weight: 40.82 kg

DRUGS (6)
  1. YAZ [Suspect]
     Indication: MENORRHAGIA
  2. LORTAB [Concomitant]
     Indication: PAIN
  3. POTASSIUM [Concomitant]
     Indication: BLOOD POTASSIUM DECREASED
  4. INFLUENZA IMMUNIZATION [Concomitant]
     Dosage: UNK
     Dates: start: 200710
  5. TYLENOL [Concomitant]
     Dosage: PRN
  6. ADVIL [Concomitant]

REACTIONS (1)
  - Deep vein thrombosis [Recovered/Resolved]
